FAERS Safety Report 8764343 (Version 3)
Quarter: 2013Q1

REPORT INFORMATION
  Report Type: Report from Study
  Country: SI (occurrence: SI)
  Receive Date: 20120830
  Receipt Date: 20130206
  Transmission Date: 20140127
  Serious: Yes (Death)
  Sender: FDA-Public Use
  Company Number: PHHO2004SI17537

PATIENT
  Age: 61 Year
  Sex: Male
  Weight: 93 kg

DRUGS (1)
  1. CGP 57148B [Suspect]
     Indication: GASTROINTESTINAL STROMAL TUMOUR
     Dosage: 400 MG, QD
     Route: 048
     Dates: start: 20041019, end: 20041203

REACTIONS (2)
  - Cardiac arrest [Fatal]
  - Cardiopulmonary failure [Fatal]
